FAERS Safety Report 8272586 (Version 2)
Quarter: 2014Q3

REPORT INFORMATION
  Report Type: Spontaneous
  Country: US (occurrence: US)
  Receive Date: 20111202
  Receipt Date: 20140805
  Transmission Date: 20150326
  Serious: Yes (Disabling, Other)
  Sender: FDA-Public Use
  Company Number: US-US-EMD SERONO, INC.-7098162

PATIENT
  Sex: Female

DRUGS (3)
  1. IBUPROFEN. [Concomitant]
     Active Substance: IBUPROFEN
     Indication: PREMEDICATION
  2. REBIF [Suspect]
     Active Substance: INTERFERON BETA-1A
     Route: 058
     Dates: start: 20111108, end: 2012
  3. REBIF [Suspect]
     Active Substance: INTERFERON BETA-1A
     Indication: MULTIPLE SCLEROSIS
     Route: 058
     Dates: end: 201012

REACTIONS (7)
  - Incorrect dose administered [Unknown]
  - Corneal opacity [Unknown]
  - Blindness [Not Recovered/Not Resolved]
  - Injection site bruising [Unknown]
  - Ulcerative keratitis [Recovered/Resolved]
  - Cognitive disorder [Unknown]
  - Eye disorder [Unknown]
